FAERS Safety Report 19511465 (Version 1)
Quarter: 2021Q3

REPORT INFORMATION
  Report Type: Spontaneous
  Country: US (occurrence: US)
  Receive Date: 20210709
  Receipt Date: 20210709
  Transmission Date: 20211014
  Serious: Yes (Other)
  Sender: FDA-Public Use
  Company Number: US-AUROBINDO-AUR-APL-2021-028692

PATIENT
  Age: 33 Year
  Sex: Male

DRUGS (31)
  1. CHLORPROMAZINE HYDROCHLORIDE. [Suspect]
     Active Substance: CHLORPROMAZINE HYDROCHLORIDE
     Indication: AGITATION
     Dosage: 50 MILLIGRAM, FOUR TIMES/DAY AS NEEDED
     Route: 030
  2. DIVALPROEX [Suspect]
     Active Substance: DIVALPROEX SODIUM
     Indication: MANIA
     Dosage: 500 MILLIGRAM, TWO TIMES A DAY
     Route: 042
  3. LORAZEPAM. [Suspect]
     Active Substance: LORAZEPAM
     Dosage: 3 MILLIGRAM, FOUR TIMES/DAY AS NEEDED
     Route: 042
  4. QUETIAPINE. [Suspect]
     Active Substance: QUETIAPINE
     Dosage: 400 MILLIGRAM, TWO TIMES A DAY
     Route: 065
  5. BENZTROPINE. [Suspect]
     Active Substance: BENZTROPINE
     Indication: DELIRIUM
     Dosage: 2 MILLIGRAM, TWO TIMES A DAY
     Route: 065
  6. DIAZEPAM. [Suspect]
     Active Substance: DIAZEPAM
     Indication: DELIRIUM
     Dosage: THREE DOSES OF 10 MG AND TWO DOSES OF 5 MG
     Route: 042
  7. CHLORPROMAZINE HYDROCHLORIDE. [Suspect]
     Active Substance: CHLORPROMAZINE HYDROCHLORIDE
     Indication: DELIRIUM
  8. QUETIAPINE. [Suspect]
     Active Substance: QUETIAPINE
     Dosage: 200 MILLIGRAM, DAILY
     Route: 065
  9. ZIPRASIDONE HYDROCHLORIDE. [Suspect]
     Active Substance: ZIPRASIDONE HYDROCHLORIDE
     Indication: DELIRIUM
     Dosage: 20 MILLIGRAM
     Route: 065
  10. FLUOXETINE [Suspect]
     Active Substance: FLUOXETINE HYDROCHLORIDE
     Indication: DELIRIUM
     Dosage: 40 MILLIGRAM, DAILY
     Route: 065
  11. BUPRENORPHINE. [Suspect]
     Active Substance: BUPRENORPHINE
     Indication: DELIRIUM
     Dosage: 8 MILLIGRAM, DAILY
     Route: 065
  12. BUPRENORPHINE. [Suspect]
     Active Substance: BUPRENORPHINE
     Dosage: 2 MILLIGRAM, TWO TIMES A DAY
     Route: 065
  13. CARBAMAZEPINE. [Suspect]
     Active Substance: CARBAMAZEPINE
     Indication: DELIRIUM
     Dosage: 200 MILLIGRAM, DAILY
     Route: 065
  14. DEXMEDETOMIDINE. [Concomitant]
     Active Substance: DEXMEDETOMIDINE
     Indication: SEDATION
     Dosage: UNK
     Route: 065
  15. RISPERIDONE. [Suspect]
     Active Substance: RISPERIDONE
     Indication: DELIRIUM
     Dosage: 2 MILLIGRAM, TWO TIMES A DAY
     Route: 065
  16. CLONIDINE. [Suspect]
     Active Substance: CLONIDINE
     Dosage: 0.1 MILLIGRAM, TWO TIMES A DAY
     Route: 065
  17. GABAPENTIN. [Suspect]
     Active Substance: GABAPENTIN
     Indication: DELIRIUM
     Dosage: 400 MILLIGRAM, 3 TIMES A DAY
     Route: 065
  18. DIVALPROEX [Suspect]
     Active Substance: DIVALPROEX SODIUM
     Indication: DELIRIUM
     Dosage: 750 MILLIGRAM, TWO TIMES A DAY
     Route: 065
  19. DIVALPROEX [Suspect]
     Active Substance: DIVALPROEX SODIUM
     Dosage: 1500 MILLIGRAM, DAILY
     Route: 065
  20. CHLORDIAZEPOXIDE. [Suspect]
     Active Substance: CHLORDIAZEPOXIDE
     Indication: DELIRIUM
     Dosage: 25 MILLIGRAM AS NEEDED
     Route: 065
  21. LORAZEPAM. [Suspect]
     Active Substance: LORAZEPAM
     Indication: DELIRIUM
     Dosage: 2 MILLIGRAM NINE DOSES
     Route: 042
  22. QUETIAPINE. [Suspect]
     Active Substance: QUETIAPINE
     Dosage: 50 MILLIGRAM, 3 TIMES A DAY
     Route: 048
  23. QUETIAPINE. [Suspect]
     Active Substance: QUETIAPINE
     Dosage: 600 MILLIGRAM, ONCE A DAY (NIGHTLY)
     Route: 065
  24. BUPRENORPHINE. [Suspect]
     Active Substance: BUPRENORPHINE
     Dosage: 4 MILLIGRAM, TWO TIMES A DAY
     Route: 065
  25. ALPRAZOLAM. [Concomitant]
     Active Substance: ALPRAZOLAM
     Indication: PRODUCT USED FOR UNKNOWN INDICATION
     Dosage: 4?14 MG DAILY
     Route: 065
  26. CLONIDINE. [Suspect]
     Active Substance: CLONIDINE
     Indication: DELIRIUM
     Dosage: 0.1 MILLIGRAM AS NEEDED
     Route: 048
  27. HYDROXYZINE [Suspect]
     Active Substance: HYDROXYZINE HYDROCHLORIDE
     Indication: DELIRIUM
     Dosage: 50 MILLIGRAM AS NEEDED
     Route: 065
  28. LORAZEPAM. [Suspect]
     Active Substance: LORAZEPAM
     Dosage: 4 MILLIGRAM, FOUR TIMES/DAY
     Route: 042
  29. QUETIAPINE. [Suspect]
     Active Substance: QUETIAPINE
     Indication: DELIRIUM
     Dosage: 300 MILLIGRAM, ONCE A DAY (NIGHTLY)
     Route: 065
  30. THIAMINE. [Concomitant]
     Active Substance: THIAMINE
     Indication: PRODUCT USED FOR UNKNOWN INDICATION
     Dosage: UNK
     Route: 065
  31. FOLIC ACID. [Concomitant]
     Active Substance: FOLIC ACID
     Indication: PRODUCT USED FOR UNKNOWN INDICATION
     Dosage: UNK
     Route: 065

REACTIONS (1)
  - Drug ineffective [Unknown]
